FAERS Safety Report 6242441-6 (Version None)
Quarter: 2009Q2

REPORT INFORMATION
  Report Type: 
  Country: None (occurrence: None)
  Receive Date: 20090622
  Receipt Date: 20090622
  Transmission Date: 20091009
  Serious: Yes (Other)
  Sender: FDA-Public Use
  Company Number: None

PATIENT
  Age: 54 Year
  Sex: Male
  Weight: 86.1834 kg

DRUGS (2)
  1. ZICAM NASAL GEL [Suspect]
     Indication: UPPER RESPIRATORY TRACT INFECTION
     Dosage: ACCORDING TO LABEL NASAL
     Route: 045
     Dates: start: 20051015, end: 20051020
  2. ZICAM SWABS [Suspect]
     Indication: UPPER RESPIRATORY TRACT INFECTION
     Dates: start: 20061025, end: 20061029

REACTIONS (2)
  - AGEUSIA [None]
  - ANOSMIA [None]
